FAERS Safety Report 9819573 (Version 1)
Quarter: 2014Q1

REPORT INFORMATION
  Report Type: Spontaneous
  Country: CA (occurrence: CA)
  Receive Date: 20140115
  Receipt Date: 20140115
  Transmission Date: 20141002
  Serious: Yes (Death, Other)
  Sender: FDA-Public Use
  Company Number: CA-MERCK-1401CAN005328

PATIENT
  Age: 69 Year
  Sex: Male
  Weight: 121 kg

DRUGS (12)
  1. JANUVIA [Suspect]
     Dosage: 100 UNKNOWN 1 EVERY 1 DAY
     Route: 048
  2. ACTOS [Concomitant]
     Route: 065
  3. CITALOPRAM [Concomitant]
     Route: 065
  4. DIAMICRON [Concomitant]
     Route: 065
  5. DILTIAZEM HYDROCHLORIDE [Concomitant]
     Route: 065
  6. HYDROCHLOROTHIAZIDE [Concomitant]
     Route: 065
  7. IRBESARTAN [Concomitant]
     Route: 065
  8. LANTUS [Concomitant]
     Route: 065
  9. METFORMIN [Concomitant]
     Route: 065
  10. REMERON [Concomitant]
     Route: 065
  11. REPAGLINIDE [Concomitant]
     Route: 065
  12. ROSUVASTATIN CALCIUM [Concomitant]
     Route: 065

REACTIONS (1)
  - Pancreatic carcinoma [Fatal]
